FAERS Safety Report 9250032 (Version 2)
Quarter: 2013Q4

REPORT INFORMATION
  Report Type: Spontaneous
  Country: US (occurrence: US)
  Receive Date: 20130424
  Receipt Date: 20131004
  Transmission Date: 20140711
  Serious: Yes (Hospitalization)
  Sender: FDA-Public Use
  Company Number: US-ASTRAZENECA-2013SE27317

PATIENT
  Age: 50 Year
  Sex: Female

DRUGS (24)
  1. NEXIUM [Suspect]
     Indication: GASTROOESOPHAGEAL REFLUX DISEASE
     Route: 048
     Dates: start: 20040220
  2. NEXIUM [Suspect]
     Indication: GASTROOESOPHAGEAL REFLUX DISEASE
     Route: 048
     Dates: start: 20041024, end: 20110830
  3. ACIPHEX [Concomitant]
     Indication: GASTROOESOPHAGEAL REFLUX DISEASE
     Dates: start: 200310, end: 200404
  4. ACIPHEX [Concomitant]
     Indication: GASTROOESOPHAGEAL REFLUX DISEASE
     Dates: start: 20041024, end: 20110830
  5. RANITIDINE [Concomitant]
     Dates: start: 20070119
  6. RANITIDINE [Concomitant]
     Dates: start: 20101020
  7. FAMOTIDINE [Concomitant]
     Indication: GASTROOESOPHAGEAL REFLUX DISEASE
     Dates: start: 2008, end: 2012
  8. PREMARIN [Concomitant]
     Indication: HORMONE REPLACEMENT THERAPY
     Dates: start: 2002, end: 2008
  9. BUMETANIDE [Concomitant]
     Indication: POLYURIA
     Dates: start: 20040105
  10. BUPROPION HCL [Concomitant]
     Indication: DEPRESSION
  11. METOPROLOL [Concomitant]
     Indication: BLOOD PRESSURE ABNORMAL
  12. PLAVIX [Concomitant]
     Indication: ANTICOAGULANT THERAPY
  13. SIMVASTATIN [Concomitant]
     Indication: BLOOD CHOLESTEROL ABNORMAL
  14. SERTRALINE [Concomitant]
     Indication: DEPRESSION
  15. BENAZEPRIL HCL [Concomitant]
     Indication: BLOOD PRESSURE ABNORMAL
  16. CILOSTAZOL [Concomitant]
     Indication: ANTICOAGULANT THERAPY
  17. THIOTHIXENE [Concomitant]
     Indication: PSYCHOTIC DISORDER
  18. ACTOS [Concomitant]
     Indication: DIABETES MELLITUS
  19. GLUCOVANCE [Concomitant]
     Indication: DIABETES MELLITUS
  20. ZYPREXA [Concomitant]
     Indication: PSYCHOTIC DISORDER
  21. IRON [Concomitant]
  22. POTASSIUM/POTASSIUM CL/KLOR-CON [Concomitant]
     Indication: VITAMIN K DEFICIENCY
  23. SPIRONOLACTONE [Concomitant]
  24. HYDROCODONE/APAP [Concomitant]
     Dosage: 100/500
     Dates: start: 20040204

REACTIONS (10)
  - Osteoarthritis [Unknown]
  - Osteopenia [Unknown]
  - Osteoporosis [Unknown]
  - Bone disorder [Unknown]
  - Multiple fractures [Unknown]
  - Pain [Unknown]
  - Joint ankylosis [Unknown]
  - Meniscus injury [Unknown]
  - Patellofemoral pain syndrome [Unknown]
  - Arthritis [Unknown]
